FAERS Safety Report 8030023-5 (Version None)
Quarter: 2012Q1

REPORT INFORMATION
  Report Type: 
  Country: None (occurrence: None)
  Receive Date: 20120109
  Receipt Date: 20111229
  Transmission Date: 20120608
  Serious: Yes (Hospitalization)
  Sender: FDA-Public Use
  Company Number: FR-SANOFI-AVENTIS-200911460FR

PATIENT
  Age: 53 Year
  Sex: Female

DRUGS (13)
  1. ACETAMINOPHEN W/ PROPOXYPHENE HCL [Suspect]
     Route: 048
  2. MEDIATOR [Suspect]
     Dosage: DOSE UNIT: 150 MG
     Route: 048
     Dates: start: 20020101, end: 20050321
  3. LACTULOSE [Suspect]
     Route: 048
  4. PAROXETINE HCL [Suspect]
     Indication: DEPRESSION
     Route: 048
     Dates: end: 20040101
  5. GLUCOPHAGE [Suspect]
     Dosage: DOSE UNIT: 850 MG
     Route: 048
     Dates: start: 20030101
  6. IMOVANE [Suspect]
     Route: 048
  7. IRBESARTAN [Suspect]
     Route: 048
  8. XANAX [Suspect]
     Route: 048
  9. LASIX [Suspect]
  10. FENOFIBRATE [Concomitant]
  11. PREVISCAN [Suspect]
     Dosage: DOSE UNIT: 20 MG
     Route: 048
  12. PRAVASTATIN [Suspect]
     Route: 048
  13. POTASSIUM CHLORIDE [Suspect]
     Route: 048

REACTIONS (4)
  - MITRAL VALVE INCOMPETENCE [None]
  - CARDIAC VALVE DISEASE [None]
  - PULMONARY ARTERIAL HYPERTENSION [None]
  - AORTIC VALVE INCOMPETENCE [None]
